FAERS Safety Report 7560311-8 (Version None)
Quarter: 2011Q2

REPORT INFORMATION
  Report Type: 
  Country: None (occurrence: None)
  Receive Date: 20110621
  Receipt Date: 20110609
  Transmission Date: 20111010
  Serious: Yes (Hospitalization)
  Sender: FDA-Public Use
  Company Number: FR-JNJFOC-20110606169

PATIENT
  Sex: Male

DRUGS (8)
  1. IMODIUM [Suspect]
     Indication: PRODUCT USED FOR UNKNOWN INDICATION
     Dosage: 3 TO 6 TABLETS DAILY
     Route: 048
  2. VALACYCLOVIR HYDROCHLORIDE [Concomitant]
  3. NALTREXONE HYDROCHLORIDE [Suspect]
     Indication: PRODUCT USED FOR UNKNOWN INDICATION
     Route: 048
     Dates: start: 20110418
  4. VITAMIN B-12 [Concomitant]
  5. FORTIMEL [Concomitant]
  6. BACTRIM DS [Concomitant]
  7. FOLIC ACID [Concomitant]
  8. PENTASA [Concomitant]

REACTIONS (5)
  - PARAESTHESIA [None]
  - CHILLS [None]
  - WITHDRAWAL SYNDROME [None]
  - HYPERHIDROSIS [None]
  - ASTHENIA [None]
